FAERS Safety Report 4335508-0 (Version None)
Quarter: 2004Q2

REPORT INFORMATION
  Report Type: 
  Country: None (occurrence: None)
  Receive Date: 20040406
  Receipt Date: 20040322
  Transmission Date: 20050107
  Serious: Yes (Hospitalization, Other)
  Sender: FDA-Public Use
  Company Number: US-SHR-04-022951

PATIENT
  Age: 50 Year
  Sex: Female

DRUGS (10)
  1. BETASERON [Suspect]
     Indication: MULTIPLE SCLEROSIS
     Dosage: 8 MIU, EVERY 2D, SUBCUTANEOUS
     Route: 058
     Dates: start: 20030910
  2. CORTICOSTEROIDS() [Suspect]
     Indication: ASTHMA
  3. MIRAPEX [Concomitant]
  4. PROVIGIL [Concomitant]
  5. TRILEPTAL ^NOVARTIS^ (OXCARBAZEPINE) [Concomitant]
  6. SINGULAIR ^MERCK^ (MONTELUKAST SODIUM) [Concomitant]
  7. ZYRTEC-D /USA/(PSEUDOEPHEDRINE HYDROCHLORIDE, CETIRIZINE HYDROCHLORIDE [Concomitant]
  8. ADVAIR (SALMETEROL XINAFOATE, FLUTICASONE PROPIONATE) [Concomitant]
  9. ESTRADIOL [Concomitant]
  10. NASAL SPRAY [Concomitant]

REACTIONS (5)
  - GALLBLADDER DISORDER [None]
  - MULTIPLE SCLEROSIS [None]
  - OPERATIVE HAEMORRHAGE [None]
  - PAIN [None]
  - PERITONEAL HAEMORRHAGE [None]
